FAERS Safety Report 7088148-7 (Version None)
Quarter: 2010Q4

REPORT INFORMATION
  Report Type: 
  Country: None (occurrence: None)
  Receive Date: 20101028
  Receipt Date: 20101008
  Transmission Date: 20110411
  Serious: Yes (Death)
  Sender: FDA-Public Use
  Company Number: 10-ADE-SU-0045-ACT

PATIENT
  Sex: Male
  Weight: 11.3 kg

DRUGS (3)
  1. H P ACTHAR [Suspect]
     Indication: INFANTILE SPASMS
     Dosage: 80 IU IM WITH TAPER
     Route: 030
     Dates: start: 20050901, end: 20051201
  2. CLOBAZAM [Concomitant]
  3. VIGABATRIN [Concomitant]

REACTIONS (2)
  - PNEUMONIA [None]
  - RESPIRATORY DISTRESS [None]
